FAERS Safety Report 11601389 (Version 1)
Quarter: 2015Q4

REPORT INFORMATION
  Report Type: Spontaneous
  Country: US (occurrence: US)
  Receive Date: 20151006
  Receipt Date: 20151006
  Transmission Date: 20160304
  Serious: No
  Sender: FDA-Public Use
  Company Number: US-AMGEN-USASP2015026341

PATIENT
  Sex: Female

DRUGS (2)
  1. PROLIA [Suspect]
     Active Substance: DENOSUMAB
     Indication: OSTEOPENIA
  2. PROLIA [Suspect]
     Active Substance: DENOSUMAB
     Indication: OSTEOPOROSIS
     Dosage: UNK
     Route: 065
     Dates: start: 2012

REACTIONS (8)
  - Gastrooesophageal reflux disease [Unknown]
  - Tooth disorder [Unknown]
  - Headache [Unknown]
  - Ear pain [Unknown]
  - Temporomandibular joint syndrome [Unknown]
  - Hypoacusis [Unknown]
  - Drug dose omission [Unknown]
  - Pain [Unknown]
